FAERS Safety Report 8022218-1 (Version None)
Quarter: 2012Q1

REPORT INFORMATION
  Report Type: 
  Country: None (occurrence: None)
  Receive Date: 20120104
  Receipt Date: 20111227
  Transmission Date: 20120608
  Serious: Yes (Other)
  Sender: FDA-Public Use
  Company Number: US-JNJFOC-20111211790

PATIENT
  Sex: Female
  Weight: 83.01 kg

DRUGS (5)
  1. MERCAPTOPURINE [Concomitant]
     Indication: COLITIS ULCERATIVE
     Route: 048
  2. REMICADE [Suspect]
     Indication: COLITIS ULCERATIVE
     Route: 042
     Dates: start: 20060101
  3. ASACOL [Concomitant]
     Indication: COLITIS ULCERATIVE
     Route: 048
  4. OMEPRAZOLE [Concomitant]
     Indication: COLITIS ULCERATIVE
     Route: 048
  5. GLYCOPYRROLATE [Concomitant]
     Indication: COLITIS ULCERATIVE
     Route: 048

REACTIONS (2)
  - IMPAIRED HEALING [None]
  - TENDON INJURY [None]
